FAERS Safety Report 4631272-6 (Version None)
Quarter: 2005Q2

REPORT INFORMATION
  Report Type: 
  Country: None (occurrence: None)
  Receive Date: 20050406
  Receipt Date: 20050322
  Transmission Date: 20051028
  Serious: Yes (Other)
  Sender: FDA-Public Use
  Company Number: US_0503114242

PATIENT
  Age: 61 Year
  Sex: Male
  Weight: 90 kg

DRUGS (9)
  1. CYMBALTA [Suspect]
     Indication: DEPRESSION
     Dosage: 60 MG DAY
     Dates: start: 20050202, end: 20050303
  2. BEXTRA [Concomitant]
  3. FLOVENT [Concomitant]
  4. SINGULAIR (MONTELUKAST) [Concomitant]
  5. SEREVENT [Concomitant]
  6. PROTONIX [Concomitant]
  7. ASPIRIN [Concomitant]
  8. NORVASC [Concomitant]
  9. PRAVACHOL [Concomitant]

REACTIONS (1)
  - BLOOD PRESSURE INCREASED [None]
